FAERS Safety Report 9746878 (Version 1)
Quarter: 2013Q4

REPORT INFORMATION
  Report Type: Report from Study
  Country: CN (occurrence: CN)
  Receive Date: 20131211
  Receipt Date: 20131211
  Transmission Date: 20140711
  Serious: Yes (Other)
  Sender: FDA-Public Use
  Company Number: CN-BAXTER-2013BAX048279

PATIENT
  Sex: 0

DRUGS (2)
  1. LOW CALCIUM PERITONEAL DIALYSIS SOLUTION ( LACTATE- G1.5%) [Suspect]
     Indication: PERITONEAL DIALYSIS
     Route: 033
  2. HERBALS [Suspect]
     Indication: PRODUCT USED FOR UNKNOWN INDICATION
     Route: 065

REACTIONS (1)
  - Abdominal infection [Unknown]
